FAERS Safety Report 14156839 (Version 2)
Quarter: 2017Q4

REPORT INFORMATION
  Report Type: Spontaneous
  Country: JP (occurrence: JP)
  Receive Date: 20171103
  Receipt Date: 20171227
  Transmission Date: 20180321
  Serious: Yes (Other)
  Sender: FDA-Public Use
  Company Number: JP-009507513-1711JPN000107J

PATIENT
  Age: 84 Year
  Sex: Female
  Weight: 43 kg

DRUGS (1)
  1. KEYTRUDA [Suspect]
     Active Substance: PEMBROLIZUMAB
     Indication: MALIGNANT MELANOMA
     Dosage: 2 MG/KG, Q3W
     Route: 041
     Dates: start: 20170613, end: 201709

REACTIONS (2)
  - Renal impairment [Recovered/Resolved]
  - Renal impairment [Recovering/Resolving]

NARRATIVE: CASE EVENT DATE: 20170714
